FAERS Safety Report 8228046-6 (Version None)
Quarter: 2012Q1

REPORT INFORMATION
  Report Type: 
  Country: None (occurrence: None)
  Receive Date: 20120322
  Receipt Date: 20120111
  Transmission Date: 20120608
  Serious: No
  Sender: FDA-Public Use
  Company Number: US-BRISTOL-MYERS SQUIBB COMPANY-16345357

PATIENT
  Age: 69 Year
  Sex: Male
  Weight: 59 kg

DRUGS (1)
  1. ERBITUX [Suspect]
     Indication: HEAD AND NECK CANCER
     Dosage: RECEIVED 5 TREATMENTS 6TH TRT ON 12JAN2012

REACTIONS (4)
  - DIARRHOEA [None]
  - PRURITUS [None]
  - ASTHENIA [None]
  - TONGUE BLISTERING [None]
